FAERS Safety Report 9750188 (Version 1)
Quarter: 2013Q4

REPORT INFORMATION
  Report Type: Spontaneous
  Country: US (occurrence: US)
  Receive Date: 20131212
  Receipt Date: 20131212
  Transmission Date: 20140711
  Serious: Yes (Hospitalization)
  Sender: FDA-Public Use
  Company Number: US-GLAXOSMITHKLINE-A1052469A

PATIENT
  Sex: Male

DRUGS (2)
  1. VOTRIENT [Suspect]
     Indication: RENAL CELL CARCINOMA
     Dosage: 800MG PER DAY
     Route: 048
  2. UNKNOWN [Concomitant]

REACTIONS (6)
  - Duodenal ulcer [Unknown]
  - Nausea [Unknown]
  - Dyspepsia [Unknown]
  - Liver function test abnormal [Unknown]
  - Blood bilirubin increased [Unknown]
  - Abdominal discomfort [Unknown]
